FAERS Safety Report 26020205 (Version 1)
Quarter: 2025Q4

REPORT INFORMATION
  Report Type: Spontaneous
  Country: EU (occurrence: EU)
  Receive Date: 20251110
  Receipt Date: 20251110
  Transmission Date: 20260118
  Serious: Yes (Other)
  Sender: MACLEODS
  Company Number: EU-MLMSERVICE-20251027-PI688911-00202-1

PATIENT

DRUGS (2)
  1. LINEZOLID [Suspect]
     Active Substance: LINEZOLID
     Indication: Corynebacterium infection
     Route: 048
     Dates: start: 202202, end: 2022
  2. VANCOMYCIN [Suspect]
     Active Substance: VANCOMYCIN
     Indication: Corynebacterium infection
     Dosage: INTRAVENOUS (I.V.) VANCOMYCIN (15 MG/KG EVERY 12 H, AFTER LOADING DOSE, ADJUSTED WEEKLY
     Route: 042
     Dates: start: 202202

REACTIONS (1)
  - Platelet count decreased [Unknown]

NARRATIVE: CASE EVENT DATE: 20220101
